FAERS Safety Report 5711631-0 (Version None)
Quarter: 2008Q2

REPORT INFORMATION
  Report Type: 
  Country: None (occurrence: None)
  Receive Date: 20080421
  Receipt Date: 20070817
  Transmission Date: 20081010
  Serious: Yes (Other)
  Sender: FDA-Public Use
  Company Number: HQWYE532814AUG07

PATIENT
  Age: 31 Year
  Sex: Male

DRUGS (8)
  1. PANTOZOL [Suspect]
     Indication: PROPHYLAXIS
     Route: 048
     Dates: start: 20070723, end: 20070729
  2. ALDACTONE [Concomitant]
  3. ZOLPIDEM [Concomitant]
     Dosage: ^DF^
  4. LASIX [Concomitant]
     Dosage: UNKNOWN
  5. HYDROCHLOROTHIAZIDE [Concomitant]
     Indication: PLEURAL EFFUSION
     Dosage: UNKNOWN
  6. DECORTIN [Concomitant]
     Indication: PLEURAL EFFUSION
     Route: 045
     Dates: end: 20070806
  7. MARCUMAR [Suspect]
     Indication: CARDIOMYOPATHY
     Dosage: ^DF^
     Dates: end: 20070727
  8. TORSEMIDE [Concomitant]
     Dosage: UNKNOWN

REACTIONS (4)
  - BLOOD BILIRUBIN INCREASED [None]
  - BLOOD LACTATE DEHYDROGENASE INCREASED [None]
  - GAMMA-GLUTAMYLTRANSFERASE INCREASED [None]
  - INTERNATIONAL NORMALISED RATIO INCREASED [None]
